FAERS Safety Report 6068854-3 (Version None)
Quarter: 2009Q1

REPORT INFORMATION
  Report Type: 
  Country: None (occurrence: None)
  Receive Date: 20090206
  Receipt Date: 20090126
  Transmission Date: 20090719
  Serious: Yes (Hospitalization)
  Sender: FDA-Public Use
  Company Number: JP-JNJFOC-20090101809

PATIENT
  Sex: Male
  Weight: 65 kg

DRUGS (7)
  1. REMICADE [Suspect]
     Dosage: RECEIVED 3 INFUSIONS
     Route: 042
  2. REMICADE [Suspect]
     Route: 042
  3. REMICADE [Suspect]
     Indication: CROHN'S DISEASE
     Route: 042
  4. LAC-B [Concomitant]
     Route: 048
  5. PENTASA [Concomitant]
     Indication: CROHN'S DISEASE
     Route: 048
  6. POSTERISAN FORTE [Concomitant]
     Indication: CROHN'S DISEASE
     Dosage: ROUTE ^OD^
  7. ELENTAL [Concomitant]
     Indication: CROHN'S DISEASE
     Route: 048

REACTIONS (1)
  - HYPOKALAEMIA [None]
